FAERS Safety Report 8654777 (Version 4)
Quarter: 2013Q2

REPORT INFORMATION
  Report Type: Spontaneous
  Country: US (occurrence: US)
  Receive Date: 20120709
  Receipt Date: 20130425
  Transmission Date: 20140414
  Serious: No
  Sender: FDA-Public Use
  Company Number: US-PFIZER INC-2012159819

PATIENT
  Age: 47 Year
  Sex: Male

DRUGS (15)
  1. LYRICA [Suspect]
     Dosage: 75 MG, 3X/DAY
     Route: 048
  2. TOVIAZ [Suspect]
     Dosage: 8 MG, (Q DAY)
     Route: 048
  3. DALMANE [Concomitant]
     Dosage: 30 MG, UNK
     Route: 048
  4. ZANTAC [Concomitant]
     Dosage: 300 MG, UNK
     Route: 048
  5. WELLBUTRIN XL [Concomitant]
     Dosage: 300 MG, UNK (TB24)
     Route: 048
  6. ZOLOFT [Concomitant]
     Dosage: 100 MG, UNK
     Route: 048
  7. IMODIUM [Concomitant]
     Dosage: 2 MG, UNK
     Route: 048
  8. OXYCONTIN [Concomitant]
     Dosage: 80 MG, UNK (TB12)
     Route: 048
  9. OXYIR [Concomitant]
     Dosage: 30 MG, UNK
     Route: 048
  10. PROVENTIL [Concomitant]
     Dosage: 90 MCG/ACTUATION IN AERO
  11. SOMA [Concomitant]
     Dosage: 350 MG, UNK
     Route: 048
  12. MOTRIN [Concomitant]
     Dosage: 600 MG, UNK
     Route: 048
  13. FLEXERIL [Concomitant]
     Dosage: 10 MG, UNK
     Route: 048
  14. MIRALAX [Concomitant]
     Dosage: 17 GRAM/DOSE POWD
     Route: 048
  15. VENTOLIN [Concomitant]
     Dosage: 90 MCG/ACTUATION IN AERO

REACTIONS (7)
  - Back pain [Unknown]
  - Irritable bowel syndrome [Unknown]
  - Urinary incontinence [Unknown]
  - Depression [Unknown]
  - Arthralgia [Unknown]
  - Rhinitis allergic [Unknown]
  - Drug ineffective [Unknown]
